FAERS Safety Report 21232326 (Version 2)
Quarter: 2022Q3

REPORT INFORMATION
  Report Type: Spontaneous
  Country: US (occurrence: US)
  Receive Date: 20220819
  Receipt Date: 20220914
  Transmission Date: 20221027
  Serious: Yes (Other)
  Sender: FDA-Public Use
  Company Number: US-CELLTRION INC.-2022US013219

PATIENT

DRUGS (1)
  1. TRUXIMA [Suspect]
     Active Substance: RITUXIMAB-ABBS
     Indication: Product used for unknown indication
     Dosage: 10 MILLIGRAM PER MILLILITRE

REACTIONS (5)
  - Suicidal ideation [Unknown]
  - Feeling abnormal [Unknown]
  - Device malfunction [Unknown]
  - Product administration error [Unknown]
  - Drug ineffective [Unknown]
